FAERS Safety Report 10948735 (Version 1)
Quarter: 2015Q1

REPORT INFORMATION
  Report Type: Spontaneous
  Country: US (occurrence: None)
  Receive Date: 20150323
  Receipt Date: 20150323
  Transmission Date: 20150721
  Serious: Yes (Hospitalization)
  Sender: FDA-Public Use
  Company Number: None

PATIENT
  Age: 73 Year
  Sex: Male
  Weight: 102 kg

DRUGS (26)
  1. AMLODIPINE (NORVASC) [Concomitant]
  2. GLATIRAMER (COPAXONE) [Concomitant]
  3. MYSTATIN (MYCOSTATIN) POWDER [Concomitant]
  4. IRON [Concomitant]
     Active Substance: IRON
  5. FENOFIBRATE (TRICOR) [Concomitant]
  6. SPIRONOLACTONE (ALDACTONE) [Concomitant]
  7. FUROSEMIDE (LASIX) [Concomitant]
  8. VITAMIN - THERAPEUTIC MULTIVITAMINS W/MINERALS (CENTRUM SILVER, THERA-M) TABS [Concomitant]
  9. CLOPIDOGREL [Suspect]
     Active Substance: CLOPIDOGREL BISULFATE
     Indication: STENT PLACEMENT
     Dosage: 1 TABLET
     Route: 048
  10. POTASSIUM CHLORIDE (KLOR-CON M20) [Concomitant]
  11. NIASPAN [Concomitant]
     Active Substance: NIACIN
  12. METOPROLOL (TOPROL-XL) [Concomitant]
  13. FOLIC ACID (FOLVITE) [Concomitant]
  14. LUPRON [Concomitant]
     Active Substance: LEUPROLIDE ACETATE
  15. LISINOPRIL (ZESTRIL) [Concomitant]
  16. VITAMIN D, CHOLECALCIFEROL [Concomitant]
  17. AMIODARONE (PACERONE) [Concomitant]
  18. GLIMEPIRIDE (AMARYL) [Concomitant]
  19. VITAMIN A [Concomitant]
     Active Substance: VITAMIN A
  20. NITROFURANTOIN, MACROCRYSTAL-MONOHYDRATE, (MACROBID) [Concomitant]
  21. OMEGA-3 ACID ETHYL ESTERS (LOVAZA) [Concomitant]
  22. SIMVASTATIN (ZOCOR) [Concomitant]
  23. ASPIRIN 81 MG [Concomitant]
     Active Substance: ASPIRIN
  24. OXYCODONE/APAP (PERCOCET) [Concomitant]
  25. BACLOFEN BY INTRATHECAL ROUTE [Concomitant]
  26. LACTOBACILLUS ACIDOPHILUS (BACID) TABS [Concomitant]

REACTIONS (3)
  - Hyponatraemia [None]
  - Urinary retention [None]
  - Urinary tract infection [None]

NARRATIVE: CASE EVENT DATE: 20140807
